FAERS Safety Report 8146885-7 (Version None)
Quarter: 2012Q1

REPORT INFORMATION
  Report Type: 
  Country: None (occurrence: None)
  Receive Date: 20120217
  Receipt Date: 20120210
  Transmission Date: 20120608
  Serious: Yes (Other)
  Sender: FDA-Public Use
  Company Number: PT-ABBOTT-12P-130-0895139-00

PATIENT
  Sex: Female

DRUGS (2)
  1. HUMIRA [Suspect]
     Indication: CROHN'S DISEASE
     Route: 058
     Dates: start: 20111017, end: 20111227
  2. SULFASALAZINE [Concomitant]
     Indication: CROHN'S DISEASE
     Dosage: GASTRO-RESISTANT TABLET-3000MG DAILY
     Route: 048
     Dates: start: 20110913

REACTIONS (3)
  - NEUTROPENIA [None]
  - LEUKOPENIA [None]
  - INFECTION SUSCEPTIBILITY INCREASED [None]
